FAERS Safety Report 10246195 (Version 1)
Quarter: 2014Q2

REPORT INFORMATION
  Report Type: Spontaneous
  Country: US (occurrence: None)
  Receive Date: 20140617
  Receipt Date: 20140617
  Transmission Date: 20141212
  Serious: Yes (Other)
  Sender: FDA-Public Use
  Company Number: None

PATIENT
  Age: 35 Year
  Sex: Female
  Weight: 136.08 kg

DRUGS (1)
  1. URIBEL [Suspect]
     Indication: PAIN
     Route: 048
     Dates: start: 20140609, end: 20140614

REACTIONS (5)
  - Headache [None]
  - Dizziness [None]
  - Lethargy [None]
  - Depression [None]
  - Suicidal ideation [None]
